FAERS Safety Report 23185590 (Version 3)
Quarter: 2023Q4

REPORT INFORMATION
  Report Type: Spontaneous
  Country: RS (occurrence: RS)
  Receive Date: 20231115
  Receipt Date: 20231204
  Transmission Date: 20240110
  Serious: Yes (Death)
  Sender: FDA-Public Use
  Company Number: RS-AstraZeneca-2023-55385

PATIENT
  Age: 47 Year
  Sex: Female

DRUGS (2)
  1. TRASTUZUMAB DERUXTECAN [Suspect]
     Active Substance: TRASTUZUMAB DERUXTECAN
     Indication: Breast cancer
     Dosage: 5.4 MG/KG
     Route: 041
     Dates: start: 20230927
  2. TRASTUZUMAB DERUXTECAN [Suspect]
     Active Substance: TRASTUZUMAB DERUXTECAN
     Dosage: 5.4 MG/KG
     Route: 041
     Dates: start: 20231018

REACTIONS (2)
  - Liver injury [Fatal]
  - Transaminases increased [Fatal]

NARRATIVE: CASE EVENT DATE: 20231103
